FAERS Safety Report 17787920 (Version 1)
Quarter: 2020Q2

REPORT INFORMATION
  Report Type: Report from Study
  Country: GB (occurrence: GB)
  Receive Date: 20200514
  Receipt Date: 20200514
  Transmission Date: 20200714
  Serious: Yes (Other)
  Sender: FDA-Public Use
  Company Number: NVSC2020GB129660

PATIENT
  Sex: Male

DRUGS (1)
  1. HYRIMOZ [Suspect]
     Active Substance: ADALIMUMAB-ADAZ
     Indication: ANKYLOSING SPONDYLITIS
     Dosage: UNK, QW
     Route: 058
     Dates: start: 20190712

REACTIONS (5)
  - Weight decreased [Unknown]
  - Depressed mood [Unknown]
  - Immunodeficiency [Unknown]
  - Dry eye [Unknown]
  - Visual impairment [Unknown]
